FAERS Safety Report 7280429-7 (Version None)
Quarter: 2011Q1

REPORT INFORMATION
  Report Type: 
  Country: None (occurrence: None)
  Receive Date: 20110208
  Receipt Date: 20110202
  Transmission Date: 20110831
  Serious: Yes (Hospitalization)
  Sender: FDA-Public Use
  Company Number: FR-SANOFI-AVENTIS-2011SA006653

PATIENT
  Age: 83 Year
  Sex: Male

DRUGS (14)
  1. PAROXETINE HCL [Suspect]
     Route: 048
     Dates: start: 20100901
  2. ALLOPURINOL [Concomitant]
     Route: 048
     Dates: start: 20100901
  3. TAHOR [Concomitant]
     Route: 048
     Dates: start: 20100531
  4. ACETAMINOPHEN [Concomitant]
     Route: 065
  5. AMOXICILLIN [Concomitant]
     Route: 048
     Dates: start: 20020101
  6. ZAMUDOL [Concomitant]
     Route: 048
     Dates: start: 20100531
  7. COLCHIMAX [Concomitant]
     Dosage: 1 EVERY TWO DAYS
     Route: 048
     Dates: start: 20100901
  8. BISOPROLOL FUMARATE [Concomitant]
     Route: 048
     Dates: start: 20100531
  9. ENALAPRIL MALEATE [Concomitant]
     Route: 048
     Dates: start: 20100531
  10. SINTROM [Concomitant]
     Dosage: ACCORDING TO INR WISHED BETWEEN 3 TO 4.5
     Route: 048
     Dates: start: 19900101
  11. LASIX [Concomitant]
     Route: 048
     Dates: start: 20100531
  12. INSPRA [Concomitant]
     Route: 048
     Dates: start: 20100531
  13. STILNOX [Suspect]
     Route: 048
     Dates: start: 20100901, end: 20100905
  14. DEXPANTHENOL [Concomitant]
     Route: 065

REACTIONS (2)
  - FALL [None]
  - FEMORAL NECK FRACTURE [None]
